FAERS Safety Report 9115584 (Version 1)
Quarter: 2013Q1

REPORT INFORMATION
  Report Type: Spontaneous
  Country: US (occurrence: US)
  Receive Date: 20130225
  Receipt Date: 20130225
  Transmission Date: 20140127
  Serious: No
  Sender: FDA-Public Use
  Company Number: US-PFIZER INC-2013067624

PATIENT
  Sex: Female

DRUGS (1)
  1. DILANTIN [Suspect]
     Dosage: 50 MG, UNK
     Route: 048

REACTIONS (2)
  - Mastication disorder [Unknown]
  - Product quality issue [Unknown]
